FAERS Safety Report 18024684 (Version 1)
Quarter: 2020Q3

REPORT INFORMATION
  Report Type: Spontaneous
  Country: US (occurrence: US)
  Receive Date: 20200715
  Receipt Date: 20200715
  Transmission Date: 20201103
  Serious: No
  Sender: FDA-Public Use
  Company Number: None

PATIENT
  Age: 48 Year
  Sex: Female
  Weight: 54 kg

DRUGS (8)
  1. PREBIOTIC [Concomitant]
  2. NP THYROID [Suspect]
     Active Substance: LEVOTHYROXINE\LIOTHYRONINE
     Indication: HYPOTHYROIDISM
     Dosage: ?          QUANTITY:3 TABLET(S);?
     Route: 048
     Dates: end: 20200715
  3. OMEGAS [Concomitant]
  4. PROBIOTICS [Concomitant]
     Active Substance: PROBIOTICS NOS
  5. TURMERIC [Concomitant]
     Active Substance: HERBALS\TURMERIC
  6. VIT D [Concomitant]
     Active Substance: VITAMIN D NOS
  7. MAGNESIUM [Concomitant]
     Active Substance: MAGNESIUM
  8. VITAMIN K [Concomitant]
     Active Substance: PHYTONADIONE

REACTIONS (4)
  - Palpitations [None]
  - Dyspnoea [None]
  - Recalled product administered [None]
  - Nausea [None]

NARRATIVE: CASE EVENT DATE: 20200628
